FAERS Safety Report 15273368 (Version 1)
Quarter: 2018Q3

REPORT INFORMATION
  Report Type: Spontaneous
  Country: BR (occurrence: BR)
  Receive Date: 20180813
  Receipt Date: 20180813
  Transmission Date: 20181010
  Serious: Yes (Life-Threatening)
  Sender: FDA-Public Use
  Company Number: PHHY2018BR072005

PATIENT
  Sex: Male
  Weight: 90 kg

DRUGS (1)
  1. RITALINA [Suspect]
     Active Substance: METHYLPHENIDATE HYDROCHLORIDE
     Indication: SCHIZOPHRENIA
     Dosage: 10 MG, BID
     Route: 048

REACTIONS (6)
  - Suicide attempt [Not Recovered/Not Resolved]
  - Accident [Not Recovered/Not Resolved]
  - Hallucination, visual [Not Recovered/Not Resolved]
  - Product use in unapproved indication [Unknown]
  - Schizophrenia [Not Recovered/Not Resolved]
  - Paraplegia [Not Recovered/Not Resolved]
